FAERS Safety Report 7077020-4 (Version None)
Quarter: 2010Q4

REPORT INFORMATION
  Report Type: 
  Country: None (occurrence: None)
  Receive Date: 20101022
  Receipt Date: 20101015
  Transmission Date: 20110411
  Serious: Yes (Other)
  Sender: FDA-Public Use
  Company Number: US-1183650

PATIENT
  Sex: Male

DRUGS (1)
  1. ACULAR [Suspect]
     Dosage: (OPHTHALMIC)
     Route: 047

REACTIONS (3)
  - ATRIAL FIBRILLATION [None]
  - DYSPNOEA [None]
  - PRURITUS [None]
